FAERS Safety Report 6865523-4 (Version None)
Quarter: 2010Q3

REPORT INFORMATION
  Report Type: 
  Country: None (occurrence: None)
  Receive Date: 20100720
  Receipt Date: 20100705
  Transmission Date: 20110219
  Serious: Yes (Hospitalization)
  Sender: FDA-Public Use
  Company Number: 1000012654

PATIENT
  Age: 20 Year
  Sex: Male
  Weight: 80 kg

DRUGS (3)
  1. ESCITALOPRAM [Suspect]
     Indication: DEPRESSION
     Dosage: 10 MG (10 MG, 1 IN 1 D), ORAL
     Route: 048
     Dates: start: 20091221
  2. STRESAM (TABLETS) [Concomitant]
  3. MAGNE B6 (TABLETS) [Concomitant]

REACTIONS (22)
  - AGGRESSION [None]
  - AGITATION [None]
  - ANXIETY [None]
  - BURNOUT SYNDROME [None]
  - CONDITION AGGRAVATED [None]
  - CONFUSIONAL STATE [None]
  - DECREASED APPETITE [None]
  - DEPERSONALISATION [None]
  - DEPRESSION [None]
  - DYSKINESIA [None]
  - DYSURIA [None]
  - FATIGUE [None]
  - INITIAL INSOMNIA [None]
  - INTENTIONAL SELF-INJURY [None]
  - MUSCULAR WEAKNESS [None]
  - NERVOUSNESS [None]
  - PANIC ATTACK [None]
  - SEXUAL DYSFUNCTION [None]
  - SOMNOLENCE [None]
  - SUICIDAL IDEATION [None]
  - WEIGHT DECREASED [None]
  - YAWNING [None]
